FAERS Safety Report 4715522-3 (Version None)
Quarter: 2005Q3

REPORT INFORMATION
  Report Type: 
  Country: None (occurrence: None)
  Receive Date: 20050718
  Receipt Date: 20050706
  Transmission Date: 20060218
  Serious: Yes (Other)
  Sender: FDA-Public Use
  Company Number: JP-JNJFOC-20050606958

PATIENT
  Sex: Male
  Weight: 57 kg

DRUGS (14)
  1. REMICADE [Suspect]
     Indication: CROHN'S DISEASE
     Dosage: 4.74 MG/KG
     Route: 042
  2. DEPAKENE [Suspect]
     Route: 048
  3. DEPAKENE [Suspect]
     Indication: CONVULSION PROPHYLAXIS
     Route: 048
  4. PREDNISOLONE [Suspect]
     Indication: CROHN'S DISEASE
     Route: 048
  5. PREDNISOLONE ACETATE [Suspect]
     Indication: CROHN'S DISEASE
     Route: 042
  6. MESALAMINE [Suspect]
     Indication: CROHN'S DISEASE
     Route: 048
  7. AMPHOTERICIN B [Concomitant]
     Route: 048
  8. CEFAMEZIN ALPHA [Concomitant]
     Route: 042
  9. CEFMETAZON [Concomitant]
     Dosage: ROUTE ^DR^
  10. ELENTAL [Concomitant]
  11. ELENTAL [Concomitant]
     Indication: CROHN'S DISEASE
     Dosage: INTRANASAL
  12. LAC B [Concomitant]
     Route: 048
  13. MEFENAMIC ACID [Concomitant]
     Route: 048
  14. PL [Concomitant]
     Route: 048

REACTIONS (2)
  - CYSTITIS [None]
  - EPILEPSY [None]
